FAERS Safety Report 4978801-0 (Version None)
Quarter: 2006Q2

REPORT INFORMATION
  Report Type: 
  Country: None (occurrence: None)
  Receive Date: 20060420
  Receipt Date: 20050420
  Transmission Date: 20061013
  Serious: Yes (Hospitalization, Disabling)
  Sender: FDA-Public Use
  Company Number: US-MERCK-0504USA03952

PATIENT
  Age: 53 Year
  Sex: Male
  Weight: 100 kg

DRUGS (1)
  1. VIOXX [Suspect]
     Indication: ARTHRALGIA
     Route: 048
     Dates: start: 19990101, end: 20030501

REACTIONS (27)
  - ARTERIOSCLEROSIS CORONARY ARTERY [None]
  - ARTHRALGIA [None]
  - CARDIAC FAILURE CONGESTIVE [None]
  - CARDIOMYOPATHY [None]
  - CELLULITIS [None]
  - CEREBROVASCULAR ACCIDENT [None]
  - CHONDROPATHY [None]
  - CONGESTIVE CARDIOMYOPATHY [None]
  - DECREASED APPETITE [None]
  - DIARRHOEA [None]
  - DYSLIPIDAEMIA [None]
  - ENTHESOPATHY [None]
  - FURUNCLE [None]
  - GOUTY ARTHRITIS [None]
  - HEART VALVE INSUFFICIENCY [None]
  - HIDRADENITIS [None]
  - HYPERLIPIDAEMIA [None]
  - HYPOCHROMIC ANAEMIA [None]
  - IRON DEFICIENCY ANAEMIA [None]
  - MYOCARDIAL INFARCTION [None]
  - ONYCHOMYCOSIS [None]
  - OSTEOARTHRITIS [None]
  - OVERDOSE [None]
  - POLYTRAUMATISM [None]
  - RHEUMATOID ARTHRITIS [None]
  - UPPER RESPIRATORY TRACT INFECTION [None]
  - VENTRICULAR TACHYCARDIA [None]
